FAERS Safety Report 11741002 (Version 7)
Quarter: 2016Q2

REPORT INFORMATION
  Report Type: Spontaneous
  Country: JP (occurrence: JP)
  Receive Date: 20151115
  Receipt Date: 20160627
  Transmission Date: 20160815
  Serious: Yes (Hospitalization, Other)
  Sender: FDA-Public Use
  Company Number: JP-HOSPIRA-3072424

PATIENT
  Age: 66 Year
  Sex: Male
  Weight: 46 kg

DRUGS (7)
  1. TS-1 [Suspect]
     Active Substance: GIMERACIL\OTERACIL\TEGAFUR
     Indication: GASTROOESOPHAGEAL CANCER
     Dosage: UNK
  2. CISPLATIN. [Suspect]
     Active Substance: CISPLATIN
     Indication: GASTROOESOPHAGEAL CANCER
     Dosage: UNK
  3. TAXOTERE [Suspect]
     Active Substance: DOCETAXEL
     Indication: GASTROOESOPHAGEAL CANCER
     Dosage: UNK
  4. POLYMYXIN B. [Concomitant]
     Active Substance: POLYMYXIN B
     Dosage: UNK
  5. LACTULOSE. [Concomitant]
     Active Substance: LACTULOSE
     Indication: GASTROINTESTINAL INFECTION
     Dosage: UNK
  6. KANAMYCIN [Concomitant]
     Active Substance: KANAMYCIN\KANAMYCIN A SULFATE
     Indication: GASTROINTESTINAL INFECTION
     Dosage: UNK
  7. AMPHOTERICIN B. [Concomitant]
     Active Substance: AMPHOTERICIN B
     Indication: GASTROINTESTINAL INFECTION
     Dosage: UNK

REACTIONS (13)
  - Diarrhoea [Unknown]
  - Hepatic function abnormal [Unknown]
  - Septic shock [Recovered/Resolved]
  - Respiratory arrest [Recovered/Resolved]
  - Blood creatinine abnormal [Unknown]
  - Blood sodium decreased [Unknown]
  - Thrombocytopenia [Unknown]
  - Bacterial translocation [Recovered/Resolved]
  - Leukopenia [Unknown]
  - Disseminated intravascular coagulation [Recovered/Resolved]
  - Enteritis [Recovered/Resolved]
  - Blood potassium decreased [Unknown]
  - Anaemia [Unknown]
